FAERS Safety Report 13793720 (Version 3)
Quarter: 2017Q3

REPORT INFORMATION
  Report Type: Report from Study
  Country: None (occurrence: US)
  Receive Date: 20170726
  Receipt Date: 20170928
  Transmission Date: 20171127
  Serious: Yes (Other)
  Sender: FDA-Public Use
  Company Number: US-ABBVIE-17K-163-2049778-00

PATIENT
  Sex: Female

DRUGS (2)
  1. HUMIRA [Suspect]
     Active Substance: ADALIMUMAB
     Route: 058
     Dates: start: 20170712
  2. HUMIRA [Suspect]
     Active Substance: ADALIMUMAB
     Indication: RHEUMATOID ARTHRITIS
     Route: 058
     Dates: start: 20170303, end: 20170604

REACTIONS (9)
  - Pain [Unknown]
  - Injection site pruritus [Recovered/Resolved]
  - Acne [Not Recovered/Not Resolved]
  - Joint stiffness [Recovering/Resolving]
  - Therapeutic response shortened [Unknown]
  - Injection site erythema [Unknown]
  - Injection site swelling [Recovered/Resolved]
  - Bronchitis [Unknown]
  - Joint neoplasm [Unknown]

NARRATIVE: CASE EVENT DATE: 2017
